FAERS Safety Report 7425026-5 (Version None)
Quarter: 2011Q2

REPORT INFORMATION
  Report Type: 
  Country: None (occurrence: None)
  Receive Date: 20110419
  Receipt Date: 20110406
  Transmission Date: 20111010
  Serious: Yes (Other)
  Sender: FDA-Public Use
  Company Number: GB-MYLANLABS-2011S1005907

PATIENT
  Age: 68 Year
  Sex: Female

DRUGS (2)
  1. ALENDRONATE SODIUM [Suspect]
     Indication: OSTEOPOROSIS
     Route: 048
     Dates: start: 20100917
  2. CALFOVIT D3 [Concomitant]
     Indication: OSTEOPOROSIS
     Dates: start: 20100625

REACTIONS (2)
  - EMOTIONAL DISTRESS [None]
  - ALOPECIA [None]
